FAERS Safety Report 18493495 (Version 1)
Quarter: 2020Q4

REPORT INFORMATION
  Report Type: Spontaneous
  Country: IE (occurrence: IE)
  Receive Date: 20201111
  Receipt Date: 20201111
  Transmission Date: 20210114
  Serious: Yes (Other)
  Sender: FDA-Public Use
  Company Number: IE-TAKEDA-2020TEU010513

PATIENT
  Age: 81 Year
  Sex: Female

DRUGS (10)
  1. OXYNORM [Concomitant]
     Active Substance: OXYCODONE HYDROCHLORIDE
     Indication: PAIN
     Dosage: 5 MILLIGRAM
     Route: 048
     Dates: start: 20200921
  2. TRELEGY ELLIPTA [Concomitant]
     Active Substance: FLUTICASONE FUROATE\UMECLIDINIUM BROMIDE\VILANTEROL TRIFENATATE
     Indication: ASTHMA
     Dosage: 92/55/22 MILLIGRAM
     Route: 055
     Dates: start: 20200920
  3. LANSPORAZOLE [Suspect]
     Active Substance: LANSOPRAZOLE
     Indication: SPINAL OPERATION
     Dosage: 30 MILLIGRAM, QD
     Route: 048
     Dates: start: 20200920, end: 20200928
  4. FLUCLOXACILLIN [Suspect]
     Active Substance: FLUCLOXACILLIN
     Indication: SPINAL OPERATION
     Dosage: 2 GRAM, Q6HR
     Route: 042
     Dates: start: 20200924, end: 20201001
  5. PARACETAMOL [Concomitant]
     Active Substance: ACETAMINOPHEN
     Indication: PAIN
     Dosage: UNK
     Route: 048
     Dates: start: 20200920
  6. EZETIMIBE. [Concomitant]
     Active Substance: EZETIMIBE
     Indication: BLOOD CHOLESTEROL
     Dosage: 10 MILLIGRAM
     Route: 048
     Dates: start: 20200920
  7. IBUPROFEN. [Suspect]
     Active Substance: IBUPROFEN
     Indication: SPINAL OPERATION
     Dosage: 400 MILLIGRAM, Q12H
     Route: 048
     Dates: start: 20200925, end: 20200927
  8. OXYNORM [Concomitant]
     Active Substance: OXYCODONE HYDROCHLORIDE
     Dosage: 7.5 MILLIGRAM
     Route: 058
  9. MONOPOST [Concomitant]
     Active Substance: LATANOPROST
     Indication: GLAUCOMA
     Dosage: 1 GTT DROPS
     Route: 047
     Dates: start: 20200920
  10. ZINACEF [Concomitant]
     Active Substance: CEFUROXIME SODIUM
     Indication: INFECTION
     Dosage: 1.5 GRAM, Q8HR
     Route: 042
     Dates: start: 20200921, end: 20200924

REACTIONS (2)
  - Acute kidney injury [Not Recovered/Not Resolved]
  - Tubulointerstitial nephritis [Not Recovered/Not Resolved]

NARRATIVE: CASE EVENT DATE: 20200927
